FAERS Safety Report 7742057-6 (Version None)
Quarter: 2011Q3

REPORT INFORMATION
  Report Type: 
  Country: None (occurrence: None)
  Receive Date: 20110912
  Receipt Date: 20110905
  Transmission Date: 20111222
  Serious: Yes (Death, Hospitalization, Other)
  Sender: FDA-Public Use
  Company Number: PHHO2011JP14592

PATIENT
  Age: 36 Year
  Sex: Female

DRUGS (21)
  1. FEMARA [Suspect]
     Indication: BREAST CANCER METASTATIC
     Dosage: 2.5 MG, UNK
     Route: 048
     Dates: start: 20100721
  2. DOCETAXEL [Concomitant]
     Indication: BREAST CANCER METASTATIC
     Dosage: UNK
     Dates: end: 20051227
  3. CYTOTEC [Concomitant]
     Indication: PROPHYLAXIS
     Dosage: UNK
     Route: 048
     Dates: start: 20100817
  4. ZOMETA [Suspect]
     Dosage: UNK
     Dates: start: 20100810
  5. MUCOSTA [Concomitant]
     Dosage: 300 MG, UNK
     Route: 048
     Dates: start: 20090806, end: 20100101
  6. HEPARIN SODIUM [Concomitant]
     Dosage: UNK
     Dates: start: 20100121, end: 20100720
  7. RABEPRAZOLE SODIUM [Concomitant]
     Indication: PROPHYLAXIS
     Dosage: 10 MG, UNK
     Route: 048
     Dates: start: 20100817
  8. ZOLADEX [Concomitant]
     Dosage: UNK
     Dates: end: 20090609
  9. XELODA [Concomitant]
     Indication: BREAST CANCER METASTATIC
     Dosage: 4200 MG, UNK
     Route: 048
     Dates: start: 20100202, end: 20100713
  10. UREPEARL [Concomitant]
     Indication: PALMAR-PLANTAR ERYTHRODYSAESTHESIA SYNDROME
     Dosage: UNK
     Dates: start: 20100427
  11. FLOMOX [Concomitant]
     Dosage: UNK
     Route: 048
     Dates: start: 20100121, end: 20100124
  12. GRANISETRON [Concomitant]
     Dosage: UNK
     Route: 042
     Dates: start: 20100202, end: 20100202
  13. LOXONIN [Concomitant]
     Dosage: 180 MG, UNK
     Route: 048
     Dates: start: 20090806, end: 20100101
  14. CYCLOPHOSPHAMIDE [Concomitant]
     Indication: BREAST CANCER METASTATIC
     Dosage: UNK
     Dates: end: 20050920
  15. KYTRIL [Concomitant]
     Dosage: UNK
     Route: 042
     Dates: start: 20090707, end: 20100112
  16. DECADRON [Concomitant]
     Dosage: UNK
     Route: 048
     Dates: start: 20090728, end: 20100115
  17. ALLEGRA [Concomitant]
     Indication: RHINITIS ALLERGIC
     Dosage: UNK
     Route: 048
     Dates: start: 20090823, end: 20100823
  18. NOLVADEX [Concomitant]
     Dosage: UNK
     Route: 048
     Dates: end: 20090609
  19. TAXOTERE [Concomitant]
     Indication: BREAST CANCER METASTATIC
     Dosage: UNK
     Dates: start: 20090707, end: 20100112
  20. INFLUENZA VACCINE [Concomitant]
     Dosage: UNK
     Dates: start: 20091106, end: 20091106
  21. EPIRUBICIN HYDROCHLORIDE [Concomitant]
     Indication: BREAST CANCER METASTATIC
     Dosage: UNK
     Dates: end: 20050920

REACTIONS (4)
  - CELLULITIS [None]
  - NEOPLASM PROGRESSION [None]
  - MONOPLEGIA [None]
  - NEOPLASM MALIGNANT [None]
